FAERS Safety Report 9476112 (Version 1)
Quarter: 2013Q3

REPORT INFORMATION
  Report Type: Spontaneous
  Country: GB (occurrence: None)
  Receive Date: 20130821
  Receipt Date: 20130821
  Transmission Date: 20140515
  Serious: Yes (Other)
  Sender: FDA-Public Use
  Company Number: 2013-002616

PATIENT
  Age: 80 Year
  Sex: Female
  Weight: 77.2 kg

DRUGS (10)
  1. ASACOL [Suspect]
     Route: 048
  2. ADCAL  /00751519/ (CALCIUM CARBONATE) [Concomitant]
  3. ADCAL D3 (CALCIUM CARBONATE, COLECALCIFEROL) [Concomitant]
  4. AMOXICILLIN (AMOXICILLIN) [Concomitant]
  5. BENDROFLUMETHIAZIDE (BENDROFLUMETHIAZIDE) [Concomitant]
  6. LOSARTAN (LOSARTAN) [Concomitant]
  7. MESALAZINE (MESALAZINE) [Concomitant]
  8. PARACETAMOL (PARACETAMOL) [Concomitant]
  9. PREDNISOLONE SODIUM PHOSPHATE (PREDNISOLONE SODIUM PHOSPHATE) [Concomitant]
  10. WARFARIN (WARFARIN) [Concomitant]

REACTIONS (1)
  - Nightmare [None]
